FAERS Safety Report 19551158 (Version 1)
Quarter: 2021Q3

REPORT INFORMATION
  Report Type: Spontaneous
  Country: US (occurrence: US)
  Receive Date: 20210715
  Receipt Date: 20210715
  Transmission Date: 20211014
  Serious: No
  Sender: FDA-Public Use
  Company Number: None

PATIENT
  Age: 55 Year
  Sex: Female

DRUGS (2)
  1. KEVZARA [Suspect]
     Active Substance: SARILUMAB
     Indication: RHEUMATOID ARTHRITIS
     Dosage: OTHER FREQUENCY:EVERY 2 WEEKS;?
     Route: 058
     Dates: start: 20210518, end: 20210630
  2. KEVZARA [Concomitant]
     Active Substance: SARILUMAB
     Dates: start: 20210519, end: 20210630

REACTIONS (1)
  - Pruritus [None]

NARRATIVE: CASE EVENT DATE: 20210602
